FAERS Safety Report 4291796-0 (Version None)
Quarter: 2004Q1

REPORT INFORMATION
  Report Type: 
  Country: None (occurrence: None)
  Receive Date: 20040211
  Receipt Date: 20030501
  Transmission Date: 20041129
  Serious: Yes (Other)
  Sender: FDA-Public Use
  Company Number: US-GLAXOSMITHKLINE-A0406921A

PATIENT
  Age: 28 Year
  Sex: Female
  Weight: 60.5 kg

DRUGS (3)
  1. IMITREX [Suspect]
     Indication: MIGRAINE
     Dosage: 6MG SINGLE DOSE
     Route: 058
     Dates: start: 20030430, end: 20030430
  2. TYLENOL (CAPLET) [Concomitant]
  3. MOTRIN [Concomitant]

REACTIONS (5)
  - COLD SWEAT [None]
  - DYSPNOEA [None]
  - HYPERSENSITIVITY [None]
  - INJECTION SITE STINGING [None]
  - INJECTION SITE URTICARIA [None]
